FAERS Safety Report 21514180 (Version 2)
Quarter: 2022Q4

REPORT INFORMATION
  Report Type: Spontaneous
  Country: JP (occurrence: JP)
  Receive Date: 20221027
  Receipt Date: 20221129
  Transmission Date: 20230113
  Serious: Yes (Life-Threatening)
  Sender: FDA-Public Use
  Company Number: JP-OTSUKA-2022_049666

PATIENT
  Age: 87 Year
  Sex: Male

DRUGS (1)
  1. SAMSCA [Suspect]
     Active Substance: TOLVAPTAN
     Indication: Product used for unknown indication
     Dosage: 15 MG/DAY
     Route: 048
     Dates: end: 202210

REACTIONS (1)
  - Hypernatraemia [Not Recovered/Not Resolved]
